FAERS Safety Report 24609028 (Version 5)
Quarter: 2025Q3

REPORT INFORMATION
  Report Type: Spontaneous
  Country: US (occurrence: US)
  Receive Date: 20241112
  Receipt Date: 20250912
  Transmission Date: 20251020
  Serious: Yes (Other)
  Sender: PFIZER
  Company Number: US-PFIZER INC-PV202300064255

PATIENT
  Age: 76 Year
  Sex: Female

DRUGS (6)
  1. BRAFTOVI [Suspect]
     Active Substance: ENCORAFENIB
     Indication: Metastatic malignant melanoma
     Dates: start: 202303
  2. BRAFTOVI [Suspect]
     Active Substance: ENCORAFENIB
     Dosage: 450 MG, DAILY (TAKE 6 CAPSULES, 450 MG TOTAL) BY MOUTH
     Route: 048
     Dates: start: 20241207
  3. BRAFTOVI [Suspect]
     Active Substance: ENCORAFENIB
     Dosage: 450 MG, DAILY (TAKE 6 CAPSULES, 450 MG TOTAL) BY MOUTH
     Route: 048
  4. MEKTOVI [Suspect]
     Active Substance: BINIMETINIB
     Indication: Metastatic malignant melanoma
     Dates: start: 202303
  5. MEKTOVI [Suspect]
     Active Substance: BINIMETINIB
     Dosage: 45 MG, 2X/DAY (TAKE 3 TABLETS, TWICE A DAY)
     Route: 048
     Dates: start: 20241207
  6. MEKTOVI [Suspect]
     Active Substance: BINIMETINIB
     Dosage: 45 MG, 2X/DAY (TAKE 3 TABLETS (45 MG TOTAL) BY MOUTH 2 (TWO) TIMES A DAY)
     Route: 048

REACTIONS (6)
  - Thrombocytopenia [Recovered/Resolved]
  - Cytopenia [Unknown]
  - Condition aggravated [Unknown]
  - Pancytopenia [Unknown]
  - Fatigue [Unknown]
  - Weight decreased [Unknown]
